FAERS Safety Report 12110220 (Version 2)
Quarter: 2016Q2

REPORT INFORMATION
  Report Type: Spontaneous
  Country: US (occurrence: US)
  Receive Date: 20160224
  Receipt Date: 20160401
  Transmission Date: 20160815
  Serious: Yes (Other)
  Sender: FDA-Public Use
  Company Number: US-009507513-1602USA009738

PATIENT
  Age: 69 Year
  Sex: Male

DRUGS (2)
  1. TICE BCG [Suspect]
     Active Substance: BACILLUS CALMETTE-GUERIN SUBSTRAIN TICE LIVE ANTIGEN
     Indication: BLADDER TRANSITIONAL CELL CARCINOMA STAGE 0
     Dosage: UNK
     Route: 043
  2. MITOMYCIN. [Suspect]
     Active Substance: MITOMYCIN
     Dosage: UNK
     Route: 043

REACTIONS (3)
  - Bladder transitional cell carcinoma recurrent [Unknown]
  - Malignant neoplasm progression [Unknown]
  - Drug ineffective [Unknown]
